FAERS Safety Report 6825888-6 (Version None)
Quarter: 2010Q3

REPORT INFORMATION
  Report Type: 
  Country: None (occurrence: None)
  Receive Date: 20100707
  Receipt Date: 20100707
  Transmission Date: 20110219
  Serious: Yes (Other)
  Sender: FDA-Public Use
  Company Number: None

PATIENT
  Age: 65 Year
  Sex: Female
  Weight: 111.5849 kg

DRUGS (2)
  1. FLECTOR [Suspect]
     Dosage: 1 PATCH EVERY 12 HR.
     Dates: start: 20100601
  2. FLECTOR [Suspect]
     Dosage: 1 PATCH EVERY 12 HR.
     Dates: start: 20100616

REACTIONS (3)
  - BURNING SENSATION [None]
  - ERYTHEMA [None]
  - PRURITUS [None]
